FAERS Safety Report 7077678-X (Version None)
Quarter: 2010Q4

REPORT INFORMATION
  Report Type: 
  Country: None (occurrence: None)
  Receive Date: 20101021
  Receipt Date: 20101012
  Transmission Date: 20110411
  Serious: Yes (Hospitalization)
  Sender: FDA-Public Use
  Company Number: LEO-2010-00912

PATIENT
  Sex: Male

DRUGS (3)
  1. TACLONEX SCALP [Suspect]
     Indication: PSORIASIS
     Dosage: 4 VIALS IN 5 DAYS,TOPICAL
     Route: 061
     Dates: start: 20100101
  2. REMICADE [Concomitant]
  3. CLOBEX [Concomitant]

REACTIONS (1)
  - ALOPECIA [None]
